FAERS Safety Report 7717123-1 (Version None)
Quarter: 2011Q3

REPORT INFORMATION
  Report Type: 
  Country: None (occurrence: None)
  Receive Date: 20110826
  Receipt Date: 20110826
  Transmission Date: 20111222
  Serious: Yes (Hospitalization)
  Sender: FDA-Public Use
  Company Number: None

PATIENT
  Sex: Male
  Weight: 70.6 kg

DRUGS (1)
  1. DOCETAXEL [Suspect]
     Dosage: 132 MG
     Dates: end: 20110816

REACTIONS (2)
  - WHITE BLOOD CELL COUNT ABNORMAL [None]
  - NEUTROPHIL COUNT DECREASED [None]
